FAERS Safety Report 6661832-2 (Version None)
Quarter: 2010Q1

REPORT INFORMATION
  Report Type: 
  Country: None (occurrence: None)
  Receive Date: 20100331
  Receipt Date: 20090724
  Transmission Date: 20100710
  Serious: Yes (Other)
  Sender: FDA-Public Use
  Company Number: US-BRISTOL-MYERS SQUIBB COMPANY-14715338

PATIENT
  Age: 64 Year
  Sex: Male
  Weight: 68 kg

DRUGS (15)
  1. ERBITUX [Suspect]
     Indication: NEOPLASM MALIGNANT
     Route: 042
     Dates: start: 20090723, end: 20090723
  2. PHENERGAN HCL [Concomitant]
     Dosage: SUPPOSITORY Q4H
  3. NYSTATIN SWISH [Concomitant]
     Dosage: 1 DF = 100,000 UNITS PER ML, 1 TSP, QID
  4. ROXICET [Concomitant]
     Dosage: 5MG-325MG/5ML, 1 DF = 1-2 TSP
     Route: 048
  5. MARINOL [Concomitant]
     Route: 048
  6. ONDANSETRON [Concomitant]
     Dosage: PRN
  7. CELEXA [Concomitant]
     Route: 048
  8. VALIUM [Concomitant]
     Route: 048
  9. LIPITOR [Concomitant]
  10. LISINOPRIL [Concomitant]
     Route: 048
  11. GLUCOPHAGE [Concomitant]
     Route: 048
  12. ANTARA (MICRONIZED) [Concomitant]
     Route: 048
  13. ATENOLOL [Concomitant]
     Dosage: 1DF=1/2 TABLET, ATENOLOL 100MG.
     Route: 048
  14. BENADRYL [Concomitant]
     Indication: PREMEDICATION
     Route: 042
  15. TYLENOL-500 [Concomitant]
     Indication: PREMEDICATION
     Route: 048

REACTIONS (1)
  - INFUSION RELATED REACTION [None]
